FAERS Safety Report 24013677 (Version 1)
Quarter: 2024Q2

REPORT INFORMATION
  Report Type: Spontaneous
  Country: CA (occurrence: CA)
  Receive Date: 20240626
  Receipt Date: 20240626
  Transmission Date: 20240715
  Serious: Yes (Other)
  Sender: FDA-Public Use
  Company Number: None

PATIENT
  Age: 78 Year
  Sex: Male

DRUGS (5)
  1. METHOTREXATE [Suspect]
     Active Substance: METHOTREXATE
     Indication: Uveitis
     Route: 065
  2. ADALIMUMAB [Concomitant]
     Active Substance: ADALIMUMAB\ISOPROPYL ALCOHOL
  3. PREDNISONE [Concomitant]
     Active Substance: PREDNISONE
  4. UPADACITINIB [Concomitant]
     Active Substance: UPADACITINIB
     Dosage: EXTENDED RELEASE
  5. METHOTREXATE [Suspect]
     Active Substance: METHOTREXATE
     Indication: Uveitis
     Dosage: 1 EVERY 1 WEEKS
     Route: 065

REACTIONS (3)
  - Blindness [Unknown]
  - Gastrointestinal disorder [Unknown]
  - Drug ineffective [Unknown]
